FAERS Safety Report 20175314 (Version 1)
Quarter: 2021Q4

REPORT INFORMATION
  Report Type: Spontaneous
  Country: US (occurrence: US)
  Receive Date: 20211213
  Receipt Date: 20211213
  Transmission Date: 20220303
  Serious: Yes (Other)
  Sender: FDA-Public Use
  Company Number: US-BAYER-2021A262142

PATIENT
  Age: 70 Year
  Sex: Male

DRUGS (2)
  1. BAYER LOW DOSE [Interacting]
     Active Substance: ASPIRIN
     Dosage: UNK
  2. HEPARIN [Interacting]
     Active Substance: HEPARIN SODIUM

REACTIONS (10)
  - Renal hamartoma [None]
  - Ileus [None]
  - Retroperitoneal haematoma [None]
  - Haemoglobin decreased [None]
  - Labelled drug-drug interaction medication error [None]
  - Abdominal pain [None]
  - Nausea [None]
  - Vomiting [None]
  - Hypotension [None]
  - Tachycardia [None]
